FAERS Safety Report 14170107 (Version 2)
Quarter: 2017Q4

REPORT INFORMATION
  Report Type: Spontaneous
  Country: JP (occurrence: JP)
  Receive Date: 20171108
  Receipt Date: 20171208
  Transmission Date: 20180321
  Serious: Yes (Death, Other)
  Sender: FDA-Public Use
  Company Number: JP-PFIZER INC-2017479636

PATIENT
  Age: 74 Year
  Sex: Male

DRUGS (6)
  1. ZOLPIDEM [Concomitant]
     Active Substance: ZOLPIDEM\ZOLPIDEM TARTRATE
     Indication: INSOMNIA
     Dosage: 5 MG, ONCE DAILY
     Route: 048
     Dates: start: 20170926, end: 20171025
  2. PRIMOBOLAN-DEPOT [Concomitant]
     Active Substance: METHENOLONE ENANTHATE
     Indication: PAROXYSMAL NOCTURNAL HAEMOGLOBINURIA
     Dosage: 5 MG, THREE TIMES DAILY
     Route: 048
     Dates: start: 20120827, end: 20171025
  3. VFEND [Suspect]
     Active Substance: VORICONAZOLE
     Indication: BRONCHOPULMONARY ASPERGILLOSIS
     Dosage: 200 MG, TWICE DAILY
     Route: 048
     Dates: start: 20171010, end: 20171018
  4. NEORAL [Concomitant]
     Active Substance: CYCLOSPORINE
     Indication: PAROXYSMAL NOCTURNAL HAEMOGLOBINURIA
     Dosage: 100 MG, TWICE DAILY
     Route: 048
     Dates: end: 20171025
  5. TEPRENONE [Concomitant]
     Active Substance: TEPRENONE
     Indication: GASTRITIS
     Dosage: 1 SACHET, THREE TIMES
     Route: 048
     Dates: start: 20170920, end: 20171025
  6. AMLODIPINE [Concomitant]
     Active Substance: AMLODIPINE BESYLATE
     Indication: HYPERTENSION
     Dosage: 5 MG, ONCE DAILY
     Route: 048
     Dates: end: 20171025

REACTIONS (6)
  - Pneumocystis jirovecii pneumonia [Unknown]
  - Haematochezia [Fatal]
  - Gastrointestinal candidiasis [Unknown]
  - Lung disorder [Fatal]
  - Hypoglycaemia [Fatal]
  - Gastric perforation [Unknown]

NARRATIVE: CASE EVENT DATE: 20171018
